FAERS Safety Report 14278639 (Version 1)
Quarter: 2017Q4

REPORT INFORMATION
  Report Type: Spontaneous
  Country: SE (occurrence: SE)
  Receive Date: 20171212
  Receipt Date: 20171212
  Transmission Date: 20180321
  Serious: Yes (Hospitalization, Other)
  Sender: FDA-Public Use
  Company Number: SE-TEVA-2017-SE-829516

PATIENT
  Age: 15 Year
  Sex: Female

DRUGS (3)
  1. SERTRALINE [Suspect]
     Active Substance: SERTRALINE HYDROCHLORIDE
     Dosage: DOSERING 2+0+0
     Dates: end: 20170926
  2. QUETIAPINE. [Concomitant]
     Active Substance: QUETIAPINE
  3. SERTRALINE [Suspect]
     Active Substance: SERTRALINE HYDROCHLORIDE
     Dates: start: 20170927, end: 201710

REACTIONS (4)
  - Anger [Unknown]
  - Psychomotor hyperactivity [Unknown]
  - Agitation [Unknown]
  - Condition aggravated [Not Recovered/Not Resolved]

NARRATIVE: CASE EVENT DATE: 2017
